FAERS Safety Report 5698803-9 (Version None)
Quarter: 2008Q2

REPORT INFORMATION
  Report Type: 
  Country: None (occurrence: None)
  Receive Date: 20080404
  Receipt Date: 20080320
  Transmission Date: 20081010
  Serious: Yes (Hospitalization)
  Sender: FDA-Public Use
  Company Number: 08-000113

PATIENT
  Age: 48 Year
  Sex: Male
  Weight: 80 kg

DRUGS (4)
  1. TACLONEX [Suspect]
     Indication: PSORIASIS
     Dosage: TOPICAL
     Route: 061
     Dates: start: 20070205
  2. DOVONEX [Suspect]
  3. ENTECAVIR TABLET, .50MG [Suspect]
     Indication: HEPATITIS
     Dosage: O.5, QD; ORAL
     Route: 048
     Dates: start: 20071201
  4. METOJECT /00113801/(METHOTREXATE) [Suspect]
     Dosage: 0.075,
     Dates: start: 20070211

REACTIONS (6)
  - MUSCULOSKELETAL PAIN [None]
  - PAIN [None]
  - PAIN IN EXTREMITY [None]
  - PARAESTHESIA [None]
  - SKIN EXFOLIATION [None]
  - THERMAL BURN [None]
